FAERS Safety Report 5690755-0 (Version None)
Quarter: 2008Q2

REPORT INFORMATION
  Report Type: 
  Country: None (occurrence: None)
  Receive Date: 20080401
  Receipt Date: 20080325
  Transmission Date: 20081010
  Serious: Yes (Other)
  Sender: FDA-Public Use
  Company Number: US-JNJFOC-20080104999

PATIENT
  Sex: Female
  Weight: 78.47 kg

DRUGS (10)
  1. LEVAQUIN [Suspect]
     Indication: UPPER RESPIRATORY TRACT INFECTION
     Route: 048
  2. INSULIN [Concomitant]
     Route: 065
  3. AMARYL [Concomitant]
     Route: 048
  4. COZAAR [Concomitant]
     Route: 048
  5. ATENOLOL [Concomitant]
     Route: 048
  6. ZYRTEC [Concomitant]
     Route: 065
  7. LANTUS [Concomitant]
     Route: 065
  8. ESTROGEN [Concomitant]
     Route: 065
  9. EYE DROPS [Concomitant]
     Route: 065
  10. ADVAIR HFA [Concomitant]
     Route: 065

REACTIONS (3)
  - ASTHENIA [None]
  - EPICONDYLITIS [None]
  - TENDONITIS [None]
